FAERS Safety Report 6889708-6 (Version None)
Quarter: 2010Q3

REPORT INFORMATION
  Report Type: 
  Country: None (occurrence: None)
  Receive Date: 20100730
  Receipt Date: 20080416
  Transmission Date: 20110219
  Serious: No
  Sender: FDA-Public Use
  Company Number: US-PFIZER INC-2008004709

PATIENT
  Sex: Female
  Weight: 71.6 kg

DRUGS (8)
  1. LIPITOR [Suspect]
     Indication: BLOOD CHOLESTEROL INCREASED
     Dates: start: 20071011, end: 20080101
  2. INSULIN [Concomitant]
     Indication: TYPE 1 DIABETES MELLITUS
  3. ACCUPRIL [Concomitant]
  4. TOPROL-XL [Concomitant]
  5. SYNTHROID [Concomitant]
  6. PROZAC [Concomitant]
  7. ASPIRIN [Concomitant]
  8. KLONOPIN [Concomitant]

REACTIONS (5)
  - CHEST PAIN [None]
  - MUSCLE STRAIN [None]
  - MYALGIA [None]
  - NASOPHARYNGITIS [None]
  - PAIN IN EXTREMITY [None]
